FAERS Safety Report 7923385-8 (Version None)
Quarter: 2011Q4

REPORT INFORMATION
  Report Type: 
  Country: None (occurrence: None)
  Receive Date: 20111117
  Receipt Date: 20110202
  Transmission Date: 20120403
  Serious: No
  Sender: FDA-Public Use
  Company Number: US-AMGEN-USASP2011004249

PATIENT
  Sex: Male

DRUGS (2)
  1. METHOTREXATE [Concomitant]
     Dates: start: 19900101
  2. ENBREL [Suspect]
     Indication: PSORIATIC ARTHROPATHY
     Dates: start: 19990101

REACTIONS (3)
  - NAUSEA [None]
  - VOMITING [None]
  - ABDOMINAL DISCOMFORT [None]
